FAERS Safety Report 24043369 (Version 1)
Quarter: 2024Q3

REPORT INFORMATION
  Report Type: Report from Study
  Country: CH (occurrence: CH)
  Receive Date: 20240703
  Receipt Date: 20240703
  Transmission Date: 20241017
  Serious: Yes (Hospitalization)
  Sender: ABBVIE
  Company Number: CH-ABBVIE-5817640

PATIENT
  Age: 32 Year
  Sex: Male
  Weight: 118 kg

DRUGS (2)
  1. SKYRIZI [Suspect]
     Active Substance: RISANKIZUMAB-RZAA
     Indication: Psoriasis
     Route: 058
     Dates: start: 20211208
  2. ENTYVIO [Suspect]
     Active Substance: VEDOLIZUMAB
     Indication: Crohn^s disease
     Route: 042
     Dates: start: 2013

REACTIONS (12)
  - Gastroenteritis Escherichia coli [Recovered/Resolved]
  - C-reactive protein increased [Unknown]
  - Chills [Recovered/Resolved]
  - Leukocytosis [Unknown]
  - Melanocytic naevus [Unknown]
  - Faecal calprotectin abnormal [Unknown]
  - Pain [Unknown]
  - Acne [Unknown]
  - Ingrowing nail [Unknown]
  - Crohn^s disease [Unknown]
  - Abdominal pain upper [Recovered/Resolved]
  - Diarrhoea [Unknown]

NARRATIVE: CASE EVENT DATE: 20220101
